FAERS Safety Report 23886013 (Version 1)
Quarter: 2024Q2

REPORT INFORMATION
  Report Type: Spontaneous
  Country: US (occurrence: US)
  Receive Date: 20240522
  Receipt Date: 20240522
  Transmission Date: 20240716
  Serious: No
  Sender: FDA-Public Use
  Company Number: US-MYLANLABS-2024M1039576

PATIENT
  Sex: Female
  Weight: 58.06 kg

DRUGS (1)
  1. ATORVASTATIN [Suspect]
     Active Substance: ATORVASTATIN
     Indication: Low density lipoprotein increased
     Dosage: 5 MILLIGRAM (BREAKS INTO 2, EVERY OTHER DAY, BY MOUTH)
     Route: 048

REACTIONS (1)
  - Wrong technique in product usage process [Unknown]
